FAERS Safety Report 4866769-7 (Version None)
Quarter: 2005Q4

REPORT INFORMATION
  Report Type: 
  Country: None (occurrence: None)
  Receive Date: 20051221
  Receipt Date: 20051213
  Transmission Date: 20060501
  Serious: Yes (Hospitalization, Other)
  Sender: FDA-Public Use
  Company Number: 2005-12-0685

PATIENT
  Age: 64 Year
  Sex: Male

DRUGS (5)
  1. INTRON A [Suspect]
     Indication: ANTIVIRAL PROPHYLAXIS
     Dosage: 6 MIU INTRAMUSCULAR
     Route: 030
     Dates: start: 20051031, end: 20051031
  2. PEGASYS (PEGYLATED INTERFREON ALFA-2A) [Suspect]
     Indication: ANTIVIRAL PROPHYLAXIS
     Dosage: 189 MCG SUBCUTANEOUS
     Route: 058
     Dates: start: 20051101, end: 20051101
  3. PEGASYS (PEGYLATED INTERFREON ALFA-2A) [Suspect]
     Indication: ANTIVIRAL PROPHYLAXIS
     Dosage: 189 MCG SUBCUTANEOUS
     Route: 058
     Dates: start: 20051101, end: 20051111
  4. PEGASYS (PEGYLATED INTERFREON ALFA-2A) [Suspect]
     Indication: ANTIVIRAL PROPHYLAXIS
     Dosage: 189 MCG SUBCUTANEOUS
     Route: 058
     Dates: start: 20051111, end: 20051111
  5. HARNAL (TAMSULOSIN HYDROCHLORIDE) [Concomitant]

REACTIONS (5)
  - BONE MARROW FAILURE [None]
  - DISSEMINATED INTRAVASCULAR COAGULATION [None]
  - INTERSTITIAL LUNG DISEASE [None]
  - MALAISE [None]
  - PYREXIA [None]
